FAERS Safety Report 17933676 (Version 1)
Quarter: 2020Q2

REPORT INFORMATION
  Report Type: Spontaneous
  Country: US (occurrence: PT)
  Receive Date: 20200624
  Receipt Date: 20200624
  Transmission Date: 20200714
  Serious: Yes (Other)
  Sender: FDA-Public Use
  Company Number: PT-TEVA-2020-PT-1790166

PATIENT
  Age: 41 Year
  Sex: Female

DRUGS (19)
  1. PEGASYS [Suspect]
     Active Substance: PEGINTERFERON ALFA-2A
     Dates: start: 200804, end: 200805
  2. SAQUINAVIR [Suspect]
     Active Substance: SAQUINAVIR
     Indication: ANTIRETROVIRAL THERAPY
     Dosage: UNK
     Dates: start: 201007
  3. RIBAVIRIN. [Suspect]
     Active Substance: RIBAVIRIN
     Indication: ANTIRETROVIRAL THERAPY
     Dosage: 1000 MG
     Dates: start: 2005, end: 2006
  4. LAMIVUDINE. [Suspect]
     Active Substance: LAMIVUDINE
     Indication: ANTIRETROVIRAL THERAPY
     Dosage: UNK
     Dates: start: 2003, end: 2005
  5. INDINAVIR [Suspect]
     Active Substance: INDINAVIR
     Indication: ANTIRETROVIRAL THERAPY
     Dosage: 2005-2006?2006-UNK
     Dates: start: 2005, end: 2006
  6. ZIDOVUDINE. [Suspect]
     Active Substance: ZIDOVUDINE
     Indication: ANTIRETROVIRAL THERAPY
     Dosage: 2003-2005?2005-2005
     Dates: start: 2003, end: 2005
  7. EFAVIRENZ. [Suspect]
     Active Substance: EFAVIRENZ
     Indication: ANTIRETROVIRAL THERAPY
     Dosage: UNK
     Dates: start: 2003
  8. ABACAVIR. [Suspect]
     Active Substance: ABACAVIR
     Dosage: 2005-2008,JUL10-UNK
     Dates: start: 2008
  9. PEGASYS [Suspect]
     Active Substance: PEGINTERFERON ALFA-2A
     Dosage: UNK, 1000 MG
     Dates: start: 200804, end: 200805
  10. RIBAVIRIN. [Suspect]
     Active Substance: RIBAVIRIN
     Dosage: CAPS 2005-2005 2005-2008, 1000 MG
     Dates: start: 2006, end: 2008
  11. NEVIRAPINE. [Suspect]
     Active Substance: NEVIRAPINE
     Dosage: UNK
     Dates: start: 2003, end: 2005
  12. TENOFOVIR [Suspect]
     Active Substance: TENOFOVIR
     Indication: ANTIRETROVIRAL THERAPY
     Dosage: 2005-UNK?JUL10-UNK
     Dates: start: 2005
  13. TENOFOVIR [Suspect]
     Active Substance: TENOFOVIR
     Dosage: UNK
     Dates: start: 201007
  14. PEGINTRON [Suspect]
     Active Substance: PEGINTERFERON ALFA-2B
     Dosage: UNK
     Dates: start: 2005, end: 2006
  15. RITONAVIR. [Suspect]
     Active Substance: RITONAVIR
     Dosage: 2005-06?2006-UNK
     Dates: start: 2005
  16. INDINAVIR [Suspect]
     Active Substance: INDINAVIR
     Dosage: UNK
     Dates: start: 2006
  17. LOPINAVIR (+) RITONAVIR [Suspect]
     Active Substance: LOPINAVIR\RITONAVIR
     Dosage: 100 MG
     Dates: start: 2005, end: 2005
  18. ABACAVIR. [Suspect]
     Active Substance: ABACAVIR
     Indication: ANTIRETROVIRAL THERAPY
     Dosage: UNK
     Dates: start: 201007
  19. SAQUINAVIR [Suspect]
     Active Substance: SAQUINAVIR
     Dosage: JUL07-08?JUL10-UNK
     Dates: start: 200707

REACTIONS (7)
  - Hepatic cirrhosis [Unknown]
  - Hypertension [Unknown]
  - Drug intolerance [Unknown]
  - Drug resistance [Unknown]
  - Vomiting [Unknown]
  - Fatigue [Unknown]
  - Nausea [Unknown]

NARRATIVE: CASE EVENT DATE: 2005
